FAERS Safety Report 6318393-7 (Version None)
Quarter: 2009Q3

REPORT INFORMATION
  Report Type: 
  Country: None (occurrence: None)
  Receive Date: 20090821
  Receipt Date: 20090817
  Transmission Date: 20100115
  Serious: Yes (Hospitalization)
  Sender: FDA-Public Use
  Company Number: IN-ELI_LILLY_AND_COMPANY-IN200908003894

PATIENT
  Sex: Male

DRUGS (1)
  1. GEMCITE [Suspect]
     Indication: NON-SMALL CELL LUNG CANCER
     Dosage: 1000 MG/M2, OVER 30 MINUTES ON DAYS 1, 8, 15 OF EACH 28-DAY CYCLE
     Route: 042

REACTIONS (1)
  - HICCUPS [None]
